FAERS Safety Report 9946600 (Version 1)
Quarter: 2014Q1

REPORT INFORMATION
  Report Type: Report from Study
  Country: US (occurrence: US)
  Receive Date: 20140303
  Receipt Date: 20140303
  Transmission Date: 20141002
  Serious: No
  Sender: FDA-Public Use
  Company Number: US-ABBVIE-13P-163-1063408-00

PATIENT
  Age: 53 Year
  Sex: Female
  Weight: 104.42 kg

DRUGS (27)
  1. HUMIRA [Suspect]
     Indication: RHEUMATOID ARTHRITIS
     Dates: start: 201301
  2. ADVAIR [Concomitant]
     Indication: ASTHMA
  3. ALBUTEROL [Concomitant]
     Indication: ASTHMA
  4. BROVANA [Concomitant]
     Indication: ASTHMA
  5. OMEGA 3 [Concomitant]
     Indication: BLOOD CHOLESTEROL INCREASED
  6. PLAVIX [Concomitant]
     Indication: TRANSIENT ISCHAEMIC ATTACK
  7. PLAQUENIL [Concomitant]
     Indication: RHEUMATOID ARTHRITIS
  8. LYRICA [Concomitant]
     Indication: FIBROMYALGIA
  9. SPIRONOLACTONE [Concomitant]
     Indication: HYPERTENSION
  10. METHOTREXATE [Concomitant]
     Indication: RHEUMATOID ARTHRITIS
  11. TOPROL [Concomitant]
     Indication: HYPERTENSION
  12. PROTONIX [Concomitant]
     Indication: GASTROOESOPHAGEAL REFLUX DISEASE
  13. LAMICTAL [Concomitant]
     Indication: DEPRESSION
  14. ASPIRIN [Concomitant]
     Indication: TRANSIENT ISCHAEMIC ATTACK
  15. FENOFIBRATE [Concomitant]
     Indication: BLOOD TRIGLYCERIDES INCREASED
  16. CELEXA [Concomitant]
     Indication: DEPRESSION
  17. OXYCONTIN [Concomitant]
     Indication: PAIN
  18. OXYCODONE [Concomitant]
     Indication: PAIN
  19. SINGULAIR [Concomitant]
     Indication: ASTHMA
  20. METFORMIN [Concomitant]
     Indication: DIABETES MELLITUS
  21. FLEXERIL [Concomitant]
     Indication: MUSCLE SPASMS
  22. KLONOPIN [Concomitant]
     Indication: MUSCLE SPASMS
  23. EVOXAC [Concomitant]
     Indication: DRY MOUTH
  24. NUMOISYN [Concomitant]
     Indication: DRY MOUTH
  25. VITAMIN D [Concomitant]
     Indication: VITAMIN D DEFICIENCY
  26. VITAMIN B COMPLEX [Concomitant]
     Indication: VITAMIN SUPPLEMENTATION
  27. ZYRTEC [Concomitant]
     Indication: HYPERSENSITIVITY

REACTIONS (3)
  - Bronchitis [Recovered/Resolved]
  - Cough [Recovered/Resolved]
  - Cough [Not Recovered/Not Resolved]
